FAERS Safety Report 20911911 (Version 2)
Quarter: 2022Q4

REPORT INFORMATION
  Report Type: Spontaneous
  Country: US (occurrence: US)
  Receive Date: 20220603
  Receipt Date: 20221027
  Transmission Date: 20230113
  Serious: Yes (Other)
  Sender: FDA-Public Use
  Company Number: US-BRISTOL-MYERS SQUIBB COMPANY-2022-021450

PATIENT
  Age: 68 Year
  Sex: Male

DRUGS (2)
  1. REVLIMID [Suspect]
     Active Substance: LENALIDOMIDE
     Indication: Plasma cell myeloma
     Route: 048
     Dates: start: 202202
  2. REVLIMID [Suspect]
     Active Substance: LENALIDOMIDE
     Route: 048
     Dates: start: 20220202, end: 20221024

REACTIONS (7)
  - Bowel movement irregularity [Unknown]
  - Plasma cell myeloma [Unknown]
  - Constipation [Unknown]
  - Ephelides [Unknown]
  - Back pain [Unknown]
  - Diarrhoea [Unknown]
  - Peripheral venous disease [Unknown]
